FAERS Safety Report 16192897 (Version 1)
Quarter: 2019Q2

REPORT INFORMATION
  Report Type: Spontaneous
  Country: KR (occurrence: KR)
  Receive Date: 20190413
  Receipt Date: 20190413
  Transmission Date: 20190711
  Serious: Yes (Other)
  Sender: FDA-Public Use
  Company Number: KR-ROCHE-2295573

PATIENT
  Age: 54 Year
  Sex: Female
  Weight: 72 kg

DRUGS (30)
  1. PERJETA [Suspect]
     Active Substance: PERTUZUMAB
     Route: 065
     Dates: start: 20160211
  2. PERJETA [Suspect]
     Active Substance: PERTUZUMAB
     Route: 065
     Dates: start: 20160303
  3. PERJETA [Suspect]
     Active Substance: PERTUZUMAB
     Route: 065
     Dates: start: 20160324
  4. DOCETAXEL. [Suspect]
     Active Substance: DOCETAXEL
     Route: 065
     Dates: start: 20160121
  5. DOCETAXEL. [Suspect]
     Active Substance: DOCETAXEL
     Route: 065
     Dates: start: 20160324
  6. DOCETAXEL. [Suspect]
     Active Substance: DOCETAXEL
     Route: 065
     Dates: start: 20160414
  7. PERJETA [Suspect]
     Active Substance: PERTUZUMAB
     Indication: BREAST CANCER
     Route: 065
     Dates: start: 20151231
  8. PERJETA [Suspect]
     Active Substance: PERTUZUMAB
     Route: 065
     Dates: start: 20160121
  9. DOCETAXEL. [Suspect]
     Active Substance: DOCETAXEL
     Route: 065
     Dates: start: 20160211
  10. SANCUSO [Concomitant]
     Active Substance: GRANISETRON
     Route: 050
     Dates: start: 20151230, end: 20160414
  11. HERCEPTIN [Suspect]
     Active Substance: TRASTUZUMAB
     Indication: BREAST CANCER
     Route: 042
     Dates: start: 20151231
  12. HERCEPTIN [Suspect]
     Active Substance: TRASTUZUMAB
     Route: 042
     Dates: start: 20160121
  13. DOCETAXEL. [Suspect]
     Active Substance: DOCETAXEL
     Route: 065
     Dates: start: 20160303
  14. PENIRAMIN [Concomitant]
     Route: 042
     Dates: start: 20151231, end: 20160415
  15. LEUCOSTIM [Concomitant]
     Active Substance: FILGRASTIM
     Route: 042
     Dates: start: 20160314, end: 20160316
  16. SUSPEN ER [Concomitant]
     Route: 048
     Dates: start: 20151231
  17. NEURONTIN (SOUTH KOREA) [Concomitant]
     Route: 048
     Dates: start: 20151231
  18. DOCETAXEL. [Suspect]
     Active Substance: DOCETAXEL
     Indication: BREAST CANCER
     Route: 065
     Dates: start: 20151231
  19. KYTRIL [Concomitant]
     Active Substance: GRANISETRON HYDROCHLORIDE
     Route: 048
     Dates: start: 20151231
  20. LEUCOSTIM [Concomitant]
     Active Substance: FILGRASTIM
     Route: 042
     Dates: start: 20160404, end: 20160405
  21. PERJETA [Suspect]
     Active Substance: PERTUZUMAB
     Route: 065
     Dates: start: 20160414
  22. HERCEPTIN [Suspect]
     Active Substance: TRASTUZUMAB
     Route: 042
     Dates: start: 20160211
  23. HERCEPTIN [Suspect]
     Active Substance: TRASTUZUMAB
     Route: 042
     Dates: start: 20160303
  24. DEXAMETHASONE. [Concomitant]
     Active Substance: DEXAMETHASONE
     Route: 048
     Dates: start: 20151231, end: 20160415
  25. NASERON [Concomitant]
     Route: 042
     Dates: start: 20151231, end: 20160415
  26. HERCEPTIN [Suspect]
     Active Substance: TRASTUZUMAB
     Route: 042
     Dates: start: 20160324
  27. HERCEPTIN [Suspect]
     Active Substance: TRASTUZUMAB
     Route: 042
     Dates: start: 20160414
  28. TANTUM (SOUTH KOREA) [Concomitant]
     Route: 048
     Dates: start: 20151231
  29. CURAN [Concomitant]
     Active Substance: RANITIDINE HYDROCHLORIDE
     Route: 042
     Dates: start: 20151231, end: 20160415
  30. NEOPLATIN (SOUTH KOREA) [Concomitant]
     Route: 042
     Dates: start: 20151231, end: 20160415

REACTIONS (4)
  - Dermatitis bullous [Recovering/Resolving]
  - Dermatitis acneiform [Recovering/Resolving]
  - Neutropenia [Recovered/Resolved]
  - Anaemia [Not Recovered/Not Resolved]

NARRATIVE: CASE EVENT DATE: 20160101
